FAERS Safety Report 16707805 (Version 7)
Quarter: 2022Q1

REPORT INFORMATION
  Report Type: Spontaneous
  Country: US (occurrence: US)
  Receive Date: 20190815
  Receipt Date: 20220223
  Transmission Date: 20220423
  Serious: Yes (Hospitalization, Other)
  Sender: FDA-Public Use
  Company Number: US-PFIZER INC-2018360182

PATIENT
  Age: 67 Year
  Sex: Male
  Weight: 107 kg

DRUGS (13)
  1. TIKOSYN [Suspect]
     Active Substance: DOFETILIDE
     Indication: Atrial fibrillation
     Dosage: 500 UG, 2 TIMES DAILY (TAKE 1 CAPSULE BY MOUTH 2 TIMES DAILY)
     Route: 048
  2. TIKOSYN [Suspect]
     Active Substance: DOFETILIDE
     Indication: Anticoagulant therapy
     Dosage: 375 UG, TWICE DAILY
     Route: 048
  3. TIKOSYN [Suspect]
     Active Substance: DOFETILIDE
     Indication: Atrial fibrillation
     Dosage: 500 UG, 2X/DAY
     Route: 048
     Dates: start: 201705
  4. TIKOSYN [Suspect]
     Active Substance: DOFETILIDE
     Dosage: 375 UG, 2X/DAY
     Dates: start: 20190724
  5. SYNTHROID [Concomitant]
     Active Substance: LEVOTHYROXINE SODIUM
     Indication: Thyroid disorder
     Dosage: 175 UG, 1X/DAY
     Route: 048
  6. SYNTHROID [Concomitant]
     Active Substance: LEVOTHYROXINE SODIUM
     Indication: Cardiac failure
     Dosage: 175 MG, 1X/DAY
     Dates: start: 2016
  7. SYNTHROID [Concomitant]
     Active Substance: LEVOTHYROXINE SODIUM
     Indication: Atrial fibrillation
  8. COREG [Concomitant]
     Active Substance: CARVEDILOL
     Indication: Atrial fibrillation
     Dosage: UNK
  9. COREG [Concomitant]
     Active Substance: CARVEDILOL
     Indication: Cardiac failure
  10. WARFARIN [Concomitant]
     Active Substance: WARFARIN
     Indication: Cardiac failure
     Dosage: 2.5 MG, 2X/DAY
     Dates: start: 201604
  11. WARFARIN [Concomitant]
     Active Substance: WARFARIN
     Indication: Atrial fibrillation
  12. WARFARIN [Concomitant]
     Active Substance: WARFARIN
     Indication: Anticoagulant therapy
  13. CARVEDILOL [Concomitant]
     Active Substance: CARVEDILOL
     Indication: Blood pressure abnormal
     Dosage: 3.125 MG, 2X/DAY
     Dates: start: 20190724

REACTIONS (6)
  - Electrocardiogram QT prolonged [Recovered/Resolved]
  - Weight decreased [Not Recovered/Not Resolved]
  - Drug dependence [Unknown]
  - Product use issue [Unknown]
  - Off label use [Unknown]
  - Product dispensing error [Unknown]

NARRATIVE: CASE EVENT DATE: 20160401
